FAERS Safety Report 20711903 (Version 1)
Quarter: 2022Q2

REPORT INFORMATION
  Report Type: Report from Study
  Country: TH (occurrence: TH)
  Receive Date: 20220414
  Receipt Date: 20220414
  Transmission Date: 20220721
  Serious: Yes (Other)
  Sender: FDA-Public Use
  Company Number: TH-JNJFOC-20220411157

PATIENT

DRUGS (18)
  1. DARUNAVIR [Suspect]
     Active Substance: DARUNAVIR
     Indication: COVID-19
     Dosage: 600 TO 1200 MG
     Route: 048
  2. CHLOROQUINE [Suspect]
     Active Substance: CHLOROQUINE
     Indication: COVID-19
     Dosage: 250 MG TO 1000 MG
     Route: 065
  3. HYDROXYCHLOROQUINE [Suspect]
     Active Substance: HYDROXYCHLOROQUINE
     Indication: COVID-19
     Dosage: 400800 MG
     Route: 065
  4. RITONAVIR [Suspect]
     Active Substance: RITONAVIR
     Indication: COVID-19
     Dosage: 100200 MG
     Route: 065
  5. LOPINAVIR [Suspect]
     Active Substance: LOPINAVIR
     Indication: COVID-19
     Route: 065
  6. AZITHROMYCIN [Suspect]
     Active Substance: AZITHROMYCIN
     Indication: COVID-19
     Dosage: 250500 MG
     Route: 065
  7. FAVIPIRAVIR [Suspect]
     Active Substance: FAVIPIRAVIR
     Indication: COVID-19
     Route: 065
  8. FAVIPIRAVIR [Suspect]
     Active Substance: FAVIPIRAVIR
     Route: 065
  9. OSELTAMIVIR [Suspect]
     Active Substance: OSELTAMIVIR
     Indication: COVID-19
     Dosage: 150300 MG
     Route: 065
  10. CLARITHROMYCIN [Concomitant]
     Active Substance: CLARITHROMYCIN
  11. DOMPERIDONE [Concomitant]
     Active Substance: DOMPERIDONE
  12. HALOPERIDOL [Concomitant]
     Active Substance: HALOPERIDOL
  13. LEVOFLOXACIN [Concomitant]
     Active Substance: LEVOFLOXACIN
  14. ONDANSETRON [Concomitant]
     Active Substance: ONDANSETRON
  15. LOPERAMIDE [Concomitant]
     Active Substance: LOPERAMIDE
  16. METOCLOPRAMIDE [Concomitant]
     Active Substance: METOCLOPRAMIDE
  17. OMEPRAZOLE [Concomitant]
     Active Substance: OMEPRAZOLE
  18. FUROSEMIDE [Concomitant]
     Active Substance: FUROSEMIDE

REACTIONS (3)
  - Electrocardiogram QT prolonged [Unknown]
  - Off label use [Unknown]
  - Product use in unapproved indication [Unknown]
